FAERS Safety Report 25045819 (Version 2)
Quarter: 2025Q1

REPORT INFORMATION
  Report Type: Spontaneous
  Country: US (occurrence: US)
  Receive Date: 20250306
  Receipt Date: 20250321
  Transmission Date: 20250409
  Serious: No
  Sender: MERZ
  Company Number: US-MRZWEB-2025020000174

PATIENT

DRUGS (6)
  1. XEOMIN [Suspect]
     Active Substance: INCOBOTULINUMTOXINA
     Indication: Skin cosmetic procedure
     Dosage: 40 INTERNATIONAL UNIT
     Dates: start: 20241227, end: 20241227
  2. XEOMIN [Suspect]
     Active Substance: INCOBOTULINUMTOXINA
     Indication: Skin wrinkling
     Dosage: 10 INTERNATIONAL UNIT
     Dates: start: 20250108, end: 20250108
  3. TOPAMAX [Concomitant]
     Active Substance: TOPIRAMATE
  4. INFLUENZA VIRUS VACCINE [Concomitant]
     Active Substance: INFLUENZA VIRUS VACCINE
     Dates: start: 2024, end: 2024
  5. INFLUENZA VIRUS VACCINE [Concomitant]
     Active Substance: INFLUENZA VIRUS VACCINE
     Dates: start: 202502, end: 202502
  6. DIPHTHERIA AND TETANUS TOXOIDS AND ACELLULAR PERTUSSIS VACCINE ADSORBE [Concomitant]
     Active Substance: DIPHTHERIA AND TETANUS TOXOIDS AND ACELLULAR PERTUSSIS VACCINE ADSORBED
     Dates: start: 2024, end: 2024

REACTIONS (1)
  - Drug ineffective [Unknown]
